FAERS Safety Report 6136981-8 (Version None)
Quarter: 2009Q1

REPORT INFORMATION
  Report Type: 
  Country: None (occurrence: None)
  Receive Date: 20090330
  Receipt Date: 20090318
  Transmission Date: 20090719
  Serious: Yes (Other)
  Sender: FDA-Public Use
  Company Number: US-PFIZER INC-2009189019

PATIENT
  Sex: Male
  Weight: 70.295 kg

DRUGS (2)
  1. VIAGRA [Suspect]
     Indication: ERECTILE DYSFUNCTION
     Dosage: 50 MG, AS NEEDED
     Dates: start: 20020101
  2. VITAMINS [Concomitant]

REACTIONS (4)
  - CYANOPSIA [None]
  - DRUG INEFFECTIVE [None]
  - EAR NEOPLASM MALIGNANT [None]
  - NASAL CONGESTION [None]
